FAERS Safety Report 4701252-0 (Version None)
Quarter: 2005Q2

REPORT INFORMATION
  Report Type: 
  Country: None (occurrence: None)
  Receive Date: 20050628
  Receipt Date: 20050616
  Transmission Date: 20051028
  Serious: Yes (Other)
  Sender: FDA-Public Use
  Company Number: GBWYE661812MAY05

PATIENT
  Sex: Female
  Weight: 60 kg

DRUGS (9)
  1. ENBREL [Suspect]
     Indication: PSORIATIC ARTHROPATHY
     Route: 058
     Dates: start: 20041210
  2. CITALOPRAM [Suspect]
  3. DIHYDROCODEINE BITARTRATE INJ [Suspect]
     Route: 048
  4. DICLOFENAC [Suspect]
  5. FOLIC ACID [Suspect]
  6. METHOTREXATE [Suspect]
     Route: 058
  7. ORAL CONTRACEPTIVE NOS [Suspect]
     Route: 048
  8. HYDROXYCHLOROQUINE SULFATE [Suspect]
     Route: 048
  9. CLOPIDOGREL BISULFATE [Suspect]

REACTIONS (1)
  - GALACTORRHOEA [None]
